FAERS Safety Report 15853641 (Version 1)
Quarter: 2019Q1

REPORT INFORMATION
  Report Type: Spontaneous
  Country: JP (occurrence: JP)
  Receive Date: 20190122
  Receipt Date: 20190122
  Transmission Date: 20190417
  Serious: No
  Sender: FDA-Public Use
  Company Number: JP-VIIV HEALTHCARE LIMITED-A201314024

PATIENT
  Age: 4 Decade
  Sex: Male

DRUGS (1)
  1. CELSENTRI [Suspect]
     Active Substance: MARAVIROC
     Indication: HIV INFECTION
     Dosage: 300 MG, BID
     Route: 048

REACTIONS (2)
  - Atopy [Recovering/Resolving]
  - Condition aggravated [Recovering/Resolving]
